FAERS Safety Report 13647313 (Version 1)
Quarter: 2017Q2

REPORT INFORMATION
  Report Type: Spontaneous
  Country: SE (occurrence: SE)
  Receive Date: 20170613
  Receipt Date: 20170613
  Transmission Date: 20170830
  Serious: Yes (Hospitalization)
  Sender: FDA-Public Use
  Company Number: SE-TEVA-775022ISR

PATIENT
  Age: 38 Year
  Sex: Female

DRUGS (19)
  1. IMOVANE [Concomitant]
     Active Substance: ZOPICLONE
  2. VOLTAREN [Concomitant]
     Active Substance: DICLOFENAC SODIUM
  3. IBUPROFEN ACTAVIS [Concomitant]
     Active Substance: IBUPROFEN
  4. ATARAX [Concomitant]
     Active Substance: HYDROXYZINE HYDROCHLORIDE
  5. CYMBALTA [Concomitant]
     Active Substance: DULOXETINE HYDROCHLORIDE
  6. PARAFLEX [Concomitant]
     Active Substance: CHLORZOXAZONE
  7. ALVEDON [Concomitant]
     Active Substance: ACETAMINOPHEN
  8. STILNOCT [Concomitant]
     Active Substance: ZOLPIDEM TARTRATE
  9. SEROQUEL [Concomitant]
     Active Substance: QUETIAPINE FUMARATE
  10. PROPAVAN [Concomitant]
     Active Substance: PROPIOMAZINE
  11. PROMETHAZINE [Concomitant]
     Active Substance: PROMETHAZINE\PROMETHAZINE HYDROCHLORIDE
  12. LAMOTRIGINE ACTAVIS [Concomitant]
     Active Substance: LAMOTRIGINE
  13. QUETIAPIN ACTAVIS [Concomitant]
     Active Substance: QUETIAPINE
  14. XERODENT [Concomitant]
  15. SERTRALINE ACTAVIS [Concomitant]
     Active Substance: SERTRALINE HYDROCHLORIDE
  16. ALIMEMAZIN [Concomitant]
  17. ZOLPIDEM [Suspect]
     Active Substance: ZOLPIDEM\ZOLPIDEM TARTRATE
     Dates: start: 20141216, end: 20141216
  18. NAPROXEN BMM PHARMA [Concomitant]
  19. NOZINAN [Concomitant]
     Active Substance: LEVOMEPROMAZINE

REACTIONS (1)
  - Toxicity to various agents [Not Recovered/Not Resolved]

NARRATIVE: CASE EVENT DATE: 20141216
